FAERS Safety Report 6100096-5 (Version None)
Quarter: 2009Q1

REPORT INFORMATION
  Report Type: 
  Country: None (occurrence: None)
  Receive Date: 20090226
  Receipt Date: 20090217
  Transmission Date: 20090719
  Serious: Yes (Other)
  Sender: FDA-Public Use
  Company Number: GXKR2009ES02065

PATIENT
  Age: 20 Day
  Sex: Male
  Weight: 25 kg

DRUGS (5)
  1. INDOMETHACIN [Suspect]
     Dosage: 10 MG/KG, (25 MG) GIVEN ENTERALLY
  2. DOPAMINE HCL [Concomitant]
  3. DOBUTAMINE (DOBUTAMINE) [Concomitant]
  4. MILRINONE (MILRINONE) [Concomitant]
  5. FUROSEMIDE [Concomitant]

REACTIONS (7)
  - ACCIDENTAL OVERDOSE [None]
  - CARDIAC FAILURE [None]
  - CONTINUOUS HAEMODIAFILTRATION [None]
  - DRUG DISPENSING ERROR [None]
  - DRUG TOXICITY [None]
  - HYPOALBUMINAEMIA [None]
  - RENAL FAILURE ACUTE [None]
